FAERS Safety Report 10037097 (Version 6)
Quarter: 2015Q1

REPORT INFORMATION
  Report Type: Report from Study
  Country: DK (occurrence: DK)
  Receive Date: 20140326
  Receipt Date: 20150102
  Transmission Date: 20150720
  Serious: Yes (Hospitalization)
  Sender: FDA-Public Use
  Company Number: DK-ROCHE-1367885

PATIENT
  Age: 69 Year
  Sex: Male
  Weight: 74.3 kg

DRUGS (18)
  1. CIFIN [Concomitant]
     Active Substance: CIPROFLOXACIN HYDROCHLORIDE
     Indication: INFECTION
     Route: 065
     Dates: start: 20140320, end: 20140328
  2. TAZOCIN [Concomitant]
     Active Substance: PIPERACILLIN SODIUM\TAZOBACTAM SODIUM
     Indication: PYREXIA
     Route: 065
     Dates: start: 20140405, end: 20140407
  3. PREDNISONE. [Suspect]
     Active Substance: PREDNISONE
     Indication: DIFFUSE LARGE B-CELL LYMPHOMA
     Dosage: MOST RECENT DOSE PRIOR TO FIRST EPISODE OF  NEUTROPENIA: 11/MAR/2014, LAST DOSE TAKEN PRIOR TO FIRST
     Route: 048
     Dates: start: 20140307
  4. PARACETAMOL [Concomitant]
     Active Substance: ACETAMINOPHEN
     Indication: HEADACHE
     Route: 065
     Dates: start: 20140307
  5. BIOCLAVID [Concomitant]
     Active Substance: AMOXICILLIN\CLAVULANIC ACID
     Indication: INFECTION
     Route: 065
     Dates: start: 20140320, end: 20140328
  6. BETOLVEX [Concomitant]
     Active Substance: CYANOCOBALAMIN
  7. GASTRO-TIMELETS [Concomitant]
     Route: 065
     Dates: start: 20140307
  8. ACICLODAN [Concomitant]
     Indication: HERPES ZOSTER
     Route: 065
     Dates: start: 20140407, end: 20140410
  9. VINCRISTINE [Suspect]
     Active Substance: VINCRISTINE
     Indication: DIFFUSE LARGE B-CELL LYMPHOMA
     Dosage: MOST RECENT DOSE PRIOR TO FIRST EPISODE OF  NEUTROPENIA: 07/MAR/2014, LAST DOSE TAKEN PRIOR TO FIRST
     Route: 050
     Dates: start: 20140307
  10. NEBIDO [Concomitant]
     Active Substance: TESTOSTERONE UNDECANOATE
     Indication: SECONDARY HYPOGONADISM
  11. OBINUTUZUMAB [Suspect]
     Active Substance: OBINUTUZUMAB
     Indication: DIFFUSE LARGE B-CELL LYMPHOMA
     Dosage: MOST RECENT DOSE PRIOR TO FIRST EPISODE OF NEUTROPENIA: 14/MAR/2014, LAST VOLUME AND DOSE CONCENTRAT
     Route: 042
     Dates: start: 20140307
  12. SOLU-MEDROL [Concomitant]
     Active Substance: METHYLPREDNISOLONE SODIUM SUCCINATE
     Route: 065
     Dates: start: 20140307
  13. CYCLOPHOSPHAMIDE. [Suspect]
     Active Substance: CYCLOPHOSPHAMIDE
     Indication: DIFFUSE LARGE B-CELL LYMPHOMA
     Dosage: MOST RECENT DOSE PRIOR TO FIRST EPISODE OF NEUTROPENIA : 07/MAR/2014, LAST DOSE TAKEN PRIOR TO FIRST
     Route: 042
     Dates: start: 20140307
  14. ASACOL [Concomitant]
     Active Substance: MESALAMINE
     Indication: COLITIS ULCERATIVE
  15. ONDANSETRON [Concomitant]
     Active Substance: ONDANSETRON
     Route: 065
     Dates: start: 20140307
  16. TAVEGYL [Concomitant]
     Active Substance: CLEMASTINE FUMARATE
     Route: 065
     Dates: start: 20140307
  17. DOXORUBICIN [Suspect]
     Active Substance: DOXORUBICIN
     Indication: DIFFUSE LARGE B-CELL LYMPHOMA
     Dosage: MOST RECENT DOSE PRIOR TO FIRST EPISODE OF NEUTROPENIA: 07/MAR/2014, LAST DOSE TAKEN PRIOR TO FIRST
     Route: 042
     Dates: start: 20140307
  18. ELTROXIN [Concomitant]
     Active Substance: LEVOTHYROXINE
     Indication: PROPHYLAXIS

REACTIONS (3)
  - Neutropenia [Recovered/Resolved]
  - Neutropenia [Recovered/Resolved]
  - Neutropenia [Not Recovered/Not Resolved]

NARRATIVE: CASE EVENT DATE: 20140317
